FAERS Safety Report 22177760 (Version 1)
Quarter: 2023Q2

REPORT INFORMATION
  Report Type: Spontaneous
  Country: FR (occurrence: FR)
  Receive Date: 20230405
  Receipt Date: 20230405
  Transmission Date: 20230722
  Serious: Yes (Other)
  Sender: FDA-Public Use
  Company Number: FR-AstraZeneca-2023A063808

PATIENT
  Age: 7 Decade
  Sex: Female

DRUGS (9)
  1. CRIZOTINIB [Interacting]
     Active Substance: CRIZOTINIB
     Indication: Lung adenocarcinoma
     Dosage: 250 MG, 1X/DAY
     Dates: start: 202111
  2. CRIZOTINIB [Interacting]
     Active Substance: CRIZOTINIB
     Dosage: 200 MG, 1X/DAY
     Dates: start: 202112, end: 202203
  3. CRIZOTINIB [Interacting]
     Active Substance: CRIZOTINIB
     Dosage: 250 MG, 1X/DAY
     Dates: start: 202203, end: 202206
  4. OSIMERTINIB [Interacting]
     Active Substance: OSIMERTINIB
     Indication: Lung adenocarcinoma
     Dosage: 40 MG, 1X/DAY
     Route: 048
     Dates: start: 202009
  5. OSIMERTINIB [Interacting]
     Active Substance: OSIMERTINIB
     Dosage: 80 MG, 1X/DAY
     Route: 048
     Dates: start: 202009
  6. IMATINIB [Interacting]
     Active Substance: IMATINIB
     Indication: Gastrointestinal stromal tumour
     Dosage: 200 MG, 1X/DAY
     Dates: start: 202104
  7. IMATINIB [Interacting]
     Active Substance: IMATINIB
     Dosage: 300 MG, 1X/DAY
     Dates: start: 202104, end: 202110
  8. IMATINIB [Interacting]
     Active Substance: IMATINIB
     Dosage: 200 MG, 1X/DAY
     Dates: start: 202201, end: 202203
  9. IMATINIB [Interacting]
     Active Substance: IMATINIB
     Dosage: 100 MG, 1X/DAY
     Dates: start: 202203, end: 202206

REACTIONS (6)
  - Hepatic cytolysis [Unknown]
  - Blood creatine phosphokinase increased [Unknown]
  - Drug interaction [Unknown]
  - Off label use [Unknown]
  - Product use issue [Unknown]
  - Off label use [Unknown]

NARRATIVE: CASE EVENT DATE: 20211101
